FAERS Safety Report 6400841-5 (Version None)
Quarter: 2009Q4

REPORT INFORMATION
  Report Type: 
  Country: None (occurrence: None)
  Receive Date: 20091009
  Receipt Date: 20080911
  Transmission Date: 20100525
  Serious: Yes (Other)
  Sender: FDA-Public Use
  Company Number: 2008SP015072

PATIENT
  Age: 49 Year
  Sex: Female

DRUGS (11)
  1. TEMODAR [Suspect]
     Dosage: 80 MG;QD;PO : 40 MG;QD;PO : 60 MG;QD;PO
     Route: 048
     Dates: end: 20080101
  2. TEMODAR [Suspect]
     Dosage: 80 MG;QD;PO : 40 MG;QD;PO : 60 MG;QD;PO
     Route: 048
     Dates: start: 20080101
  3. TEMODAR [Suspect]
     Dosage: 80 MG;QD;PO : 40 MG;QD;PO : 60 MG;QD;PO
     Route: 048
     Dates: start: 20080715
  4. KEPPRA [Concomitant]
  5. LIPITOR [Concomitant]
  6. ZETIA [Concomitant]
  7. LEXAPRO [Concomitant]
  8. COMPAZINE [Concomitant]
  9. PREVACHOL [Concomitant]
  10. MOTRIN [Concomitant]
  11. ALEVE [Concomitant]

REACTIONS (1)
  - THROMBOCYTOPENIA [None]
